FAERS Safety Report 9200756 (Version 1)
Quarter: 2013Q1

REPORT INFORMATION
  Report Type: Spontaneous
  Country: NL (occurrence: None)
  Receive Date: 20130327
  Receipt Date: 20130327
  Transmission Date: 20140127
  Serious: Yes (Other)
  Sender: FDA-Public Use
  Company Number: 2013-04839

PATIENT
  Age: 9 Year
  Sex: Female

DRUGS (2)
  1. SALBUTAMOL [Suspect]
     Indication: ASTHMA
     Route: 055
  2. FLUTICASONE [Suspect]
     Indication: ASTHMA
     Dosage: 2DD
     Route: 055

REACTIONS (3)
  - Abnormal behaviour [None]
  - Crying [None]
  - School refusal [None]
